FAERS Safety Report 8409109-9 (Version None)
Quarter: 2012Q2

REPORT INFORMATION
  Report Type: 
  Country: None (occurrence: None)
  Receive Date: 20120604
  Receipt Date: 20120525
  Transmission Date: 20120825
  Serious: Yes (Hospitalization, Other)
  Sender: FDA-Public Use
  Company Number: US-MPIJNJ-2012-03763

PATIENT
  Age: 59 Year
  Sex: Female
  Weight: 72.7 kg

DRUGS (10)
  1. VELCADE [Suspect]
     Indication: MULTIPLE MYELOMA
     Dosage: 1.3 MG/M2, UNK
     Route: 042
     Dates: start: 20120101, end: 20120422
  2. REVLIMID [Suspect]
     Indication: MULTIPLE MYELOMA
  3. CYCLOSPORINE [Suspect]
     Dosage: 500 UNK, UNK
  4. LORAZEPAM [Concomitant]
     Indication: PRODUCT USED FOR UNKNOWN INDICATION
  5. CYCLOSPORINE [Suspect]
     Indication: MULTIPLE MYELOMA
     Dosage: 1000 MG/M2, UNK
  6. FLUCONAZOLE [Concomitant]
     Indication: PRODUCT USED FOR UNKNOWN INDICATION
  7. ONDANSETRON [Concomitant]
     Indication: PRODUCT USED FOR UNKNOWN INDICATION
  8. DEXAMETHASONE [Suspect]
     Indication: MULTIPLE MYELOMA
  9. HYDROCODONE BITARTRATE + ACETAMINOPHEN [Concomitant]
     Indication: PRODUCT USED FOR UNKNOWN INDICATION
  10. PROCHLORPERAZINE [Concomitant]
     Indication: PRODUCT USED FOR UNKNOWN INDICATION

REACTIONS (5)
  - DYSPHAGIA [None]
  - APPENDICITIS [None]
  - CLOSTRIDIAL INFECTION [None]
  - NEUTROPENIA [None]
  - FEBRILE NEUTROPENIA [None]
